FAERS Safety Report 18360710 (Version 6)
Quarter: 2021Q1

REPORT INFORMATION
  Report Type: Spontaneous
  Country: US (occurrence: US)
  Receive Date: 20201008
  Receipt Date: 20210316
  Transmission Date: 20210419
  Serious: Yes (Other)
  Sender: FDA-Public Use
  Company Number: US-BIOGEN-2020BI00932661

PATIENT
  Age: 51 Year
  Sex: Male

DRUGS (2)
  1. TYSABRI [Suspect]
     Active Substance: NATALIZUMAB
     Indication: MULTIPLE SCLEROSIS
     Route: 065
     Dates: start: 20170315, end: 20190329
  2. TYSABRI [Suspect]
     Active Substance: NATALIZUMAB
     Dosage: INFUSED OVER ONE HOUR
     Route: 042
     Dates: start: 20200127, end: 20201002

REACTIONS (2)
  - Off label use [Unknown]
  - Blindness [Not Recovered/Not Resolved]

NARRATIVE: CASE EVENT DATE: 20201002
